FAERS Safety Report 8601096-3 (Version None)
Quarter: 2012Q3

REPORT INFORMATION
  Report Type: 
  Country: None (occurrence: None)
  Receive Date: 20120817
  Receipt Date: 20120809
  Transmission Date: 20120928
  Serious: Yes (Other)
  Sender: FDA-Public Use
  Company Number: PHHY2012US069570

PATIENT
  Age: 18 Year
  Sex: Male

DRUGS (9)
  1. VANCOMYCIN [Suspect]
     Dosage: 1 G, Q12H
     Route: 042
  2. VANCOMYCIN [Suspect]
     Dosage: 1.5 G, Q12H
     Route: 042
  3. AMOXICILLIN [Concomitant]
  4. RIFAMPIN [Concomitant]
     Dosage: 300 MG, BID
     Route: 048
  5. ERTAPENEM [Concomitant]
  6. TELAVANCIN HYDROCHLORIDE [Concomitant]
     Dosage: 750 MG, UNK
  7. MINOCYCLINE HCL [Concomitant]
  8. DAPTOMYCIN [Concomitant]
     Dosage: 8 MG/KG, QD
  9. MEROPENEM [Concomitant]
     Dosage: 1 G, Q8H
     Route: 042

REACTIONS (8)
  - BONE MARROW FAILURE [None]
  - FATIGUE [None]
  - CHILLS [None]
  - NEUTROPENIA [None]
  - PRURITUS GENERALISED [None]
  - LEUKOPENIA [None]
  - MALAISE [None]
  - PYREXIA [None]
